FAERS Safety Report 22027065 (Version 1)
Quarter: 2023Q1

REPORT INFORMATION
  Report Type: Spontaneous
  Country: CN (occurrence: CN)
  Receive Date: 20230223
  Receipt Date: 20230223
  Transmission Date: 20230418
  Serious: Yes (Other)
  Sender: FDA-Public Use
  Company Number: CN-Accord-301527

PATIENT
  Age: 52 Year
  Sex: Female

DRUGS (26)
  1. CARBOPLATIN [Suspect]
     Active Substance: CARBOPLATIN
     Indication: Ovarian cancer metastatic
     Dosage: CUMULATIVE DOSE -4540 MG
     Dates: start: 20170529, end: 20170809
  2. CISPLATIN [Suspect]
     Active Substance: CISPLATIN
     Indication: Ovarian cancer metastatic
     Dosage: CUMULATIVE DOSE -945 MG
     Dates: start: 20200408, end: 20200610
  3. DOCETAXEL [Suspect]
     Active Substance: DOCETAXEL
     Indication: Ovarian cancer metastatic
     Dosage: CUMULATIVE DOSE-235 MG
     Dates: start: 20180201, end: 20180228
  4. GEMCITABINE [Suspect]
     Active Substance: GEMCITABINE
     Indication: Ovarian cancer metastatic
     Dosage: CUMULATIVE DOSE -8.7 G, 1.0 G ON D1,D8
     Dates: start: 20171122, end: 2017
  5. IRINOTECAN [Suspect]
     Active Substance: IRINOTECAN
     Indication: Ovarian cancer metastatic
     Dosage: CUMULATIVE DOSE-2520 MG, 120 MG ON D1, D8, D15 IV X 7 CYCLES
     Dates: start: 201804, end: 201810
  6. BEVACIZUMAB [Suspect]
     Active Substance: BEVACIZUMAB
     Indication: Ovarian cancer metastatic
     Dosage: CUMULATIVE DOSE: 6900 MG, BEVACIZUMAB 300 MG Q3W IV X 7 CYCLES
     Dates: start: 201804, end: 201810
  7. DOXORUBICIN [Suspect]
     Active Substance: DOXORUBICIN
     Indication: Ovarian cancer metastatic
     Dosage: CUMULATIVE DOSE- 400 MG
     Dates: start: 20200307, end: 2020
  8. PACLITAXEL [Suspect]
     Active Substance: PACLITAXEL
     Indication: Ovarian cancer metastatic
     Dosage: CUMULATIVE DOSE -2100 MG
     Dates: start: 2016
  9. OLAPARIB [Concomitant]
     Active Substance: OLAPARIB
     Indication: Ovarian cancer metastatic
     Dosage: 300 MG PO BID
     Route: 048
     Dates: start: 20190614, end: 20191017
  10. OLAPARIB [Concomitant]
     Active Substance: OLAPARIB
     Indication: Ovarian cancer metastatic
     Dosage: 300 MG PO BID
     Route: 048
     Dates: start: 201901, end: 201906
  11. BEVACIZUMAB [Suspect]
     Active Substance: BEVACIZUMAB
     Indication: Ovarian cancer metastatic
     Dates: start: 20191115, end: 20200207
  12. BEVACIZUMAB [Suspect]
     Active Substance: BEVACIZUMAB
     Indication: Ovarian cancer metastatic
     Dates: start: 20200307, end: 2020
  13. BEVACIZUMAB [Suspect]
     Active Substance: BEVACIZUMAB
     Indication: Ovarian cancer metastatic
     Dates: start: 20190614, end: 20191017
  14. CARBOPLATIN [Suspect]
     Active Substance: CARBOPLATIN
     Indication: Ovarian cancer metastatic
     Dates: start: 2016
  15. DOXORUBICIN [Suspect]
     Active Substance: DOXORUBICIN
     Indication: Ovarian cancer metastatic
     Dosage: CUMULATIVE DOSE- 400 MG
     Dates: start: 20200408, end: 20200610
  16. DOXORUBICIN [Suspect]
     Active Substance: DOXORUBICIN
     Indication: Ovarian cancer metastatic
     Dosage: CUMULATIVE DOSE- 400 MG
     Dates: start: 20191115, end: 20200207
  17. GEMCITABINE [Suspect]
     Active Substance: GEMCITABINE
     Indication: Ovarian cancer metastatic
     Dosage: 1.5 G ON D1, D8, D15
     Dates: start: 20170914, end: 2017
  18. GEMCITABINE [Suspect]
     Active Substance: GEMCITABINE
     Indication: Ovarian cancer metastatic
     Dosage: 1.2 G ON D1, 1.0 G ON D8
     Dates: start: 20171021, end: 2017
  19. PACLITAXEL [Suspect]
     Active Substance: PACLITAXEL
     Indication: Ovarian cancer metastatic
     Dates: start: 20170529, end: 20170809
  20. DOCETAXEL [Suspect]
     Active Substance: DOCETAXEL
     Indication: Ovarian cancer metastatic
     Dates: start: 20171227
  21. CISPLATIN [Suspect]
     Active Substance: CISPLATIN
     Indication: Ovarian cancer metastatic
     Dates: start: 20171227
  22. CISPLATIN [Suspect]
     Active Substance: CISPLATIN
     Indication: Ovarian cancer metastatic
     Dates: start: 20170914, end: 2017
  23. CISPLATIN [Suspect]
     Active Substance: CISPLATIN
     Indication: Ovarian cancer metastatic
     Dates: start: 20180201, end: 20180228
  24. CISPLATIN [Suspect]
     Active Substance: CISPLATIN
     Indication: Ovarian cancer metastatic
     Dates: start: 20171122, end: 2017
  25. CISPLATIN [Suspect]
     Active Substance: CISPLATIN
     Indication: Ovarian cancer metastatic
     Dates: start: 20171021, end: 2017
  26. CISPLATIN [Suspect]
     Active Substance: CISPLATIN
     Indication: Ovarian cancer metastatic
     Dates: start: 20200307, end: 2020

REACTIONS (1)
  - Chronic kidney disease [Unknown]

NARRATIVE: CASE EVENT DATE: 20200601
